FAERS Safety Report 16256974 (Version 1)
Quarter: 2019Q2

REPORT INFORMATION
  Report Type: Spontaneous
  Country: US (occurrence: US)
  Receive Date: 20190430
  Receipt Date: 20190430
  Transmission Date: 20190711
  Serious: Yes (Other)
  Sender: FDA-Public Use
  Company Number: US-BRISTOL-MYERS SQUIBB COMPANY-BMS-2019-039170

PATIENT
  Age: 89 Year
  Sex: Male

DRUGS (1)
  1. COUMADIN [Suspect]
     Active Substance: WARFARIN SODIUM
     Indication: PRODUCT USED FOR UNKNOWN INDICATION
     Dosage: UNK
     Route: 065
     Dates: end: 20190415

REACTIONS (5)
  - Neoplasm malignant [Unknown]
  - Skin atrophy [Unknown]
  - Haemorrhage [Unknown]
  - Balance disorder [Unknown]
  - Fall [Unknown]

NARRATIVE: CASE EVENT DATE: 2019
